FAERS Safety Report 5225648-6 (Version None)
Quarter: 2007Q1

REPORT INFORMATION
  Report Type: 
  Country: None (occurrence: None)
  Receive Date: 20061201
  Receipt Date: 20061023
  Transmission Date: 20070707
  Serious: Yes (Other)
  Sender: FDA-Public Use
  Company Number: US200610004690

PATIENT
  Age: 85 Year
  Sex: Female

DRUGS (1)
  1. CYMBALTA [Suspect]
     Dosage: 60 MG, UNK, UNK;   40 MG, UNK, UNK
     Dates: start: 20060801, end: 20061001

REACTIONS (1)
  - BLOOD SODIUM DECREASED [None]
